FAERS Safety Report 6210264-X (Version None)
Quarter: 2009Q2

REPORT INFORMATION
  Report Type: 
  Country: None (occurrence: None)
  Receive Date: 20090527
  Receipt Date: 20090511
  Transmission Date: 20091009
  Serious: Yes (Hospitalization)
  Sender: FDA-Public Use
  Company Number: 8042671

PATIENT
  Age: 71 Year
  Sex: Male
  Weight: 74 kg

DRUGS (8)
  1. CDP870 [Suspect]
     Indication: CROHN'S DISEASE
     Dosage: 400 MG 1/2W SC
     Route: 058
     Dates: start: 20080826, end: 20081117
  2. PREDNISOLONE [Concomitant]
  3. MESALAZINE [Concomitant]
  4. LASIX [Concomitant]
  5. FOLATE [Concomitant]
  6. VIT D [Concomitant]
  7. KELP [Concomitant]
  8. IMODIUM /00384302/ [Concomitant]

REACTIONS (19)
  - BENIGN NEOPLASM OF THYROID GLAND [None]
  - BLOOD THYROID STIMULATING HORMONE DECREASED [None]
  - CANDIDIASIS [None]
  - COLITIS [None]
  - COMPUTERISED TOMOGRAM ABDOMEN ABNORMAL [None]
  - CONDITION AGGRAVATED [None]
  - CROHN'S DISEASE [None]
  - DRUG INEFFECTIVE [None]
  - FAECAL INCONTINENCE [None]
  - GASTRITIS [None]
  - GASTROINTESTINAL ULCER [None]
  - GASTROINTESTINAL VIRAL INFECTION [None]
  - GASTROOESOPHAGEAL REFLUX DISEASE [None]
  - IRON DEFICIENCY ANAEMIA [None]
  - LOWER RESPIRATORY TRACT INFECTION FUNGAL [None]
  - PLATELET COUNT INCREASED [None]
  - SEPSIS [None]
  - VISUAL IMPAIRMENT [None]
  - WHITE BLOOD CELL COUNT DECREASED [None]
